FAERS Safety Report 18429621 (Version 1)
Quarter: 2020Q4

REPORT INFORMATION
  Report Type: Report from Study
  Country: None (occurrence: AT)
  Receive Date: 20201026
  Receipt Date: 20201026
  Transmission Date: 20210114
  Serious: Yes (Other)
  Sender: FDA-Public Use
  Company Number: AT-ABBVIE-20K-009-3621656-00

PATIENT
  Sex: Female

DRUGS (1)
  1. HUMIRA [Suspect]
     Active Substance: ADALIMUMAB
     Indication: RHEUMATOID ARTHRITIS
     Route: 058
     Dates: start: 20190730

REACTIONS (9)
  - Muscle spasms [Recovered/Resolved]
  - Pruritus [Recovering/Resolving]
  - Muscle spasms [Recovering/Resolving]
  - Intestinal haemorrhage [Recovering/Resolving]
  - Nausea [Recovering/Resolving]
  - Erythema [Recovering/Resolving]
  - Muscle spasms [Recovered/Resolved]
  - Intestinal haemorrhage [Recovered/Resolved]
  - Intestinal haemorrhage [Recovered/Resolved]

NARRATIVE: CASE EVENT DATE: 2019
